FAERS Safety Report 4594824-8 (Version None)
Quarter: 2005Q1

REPORT INFORMATION
  Report Type: 
  Country: None (occurrence: None)
  Receive Date: 20050223
  Receipt Date: 20050210
  Transmission Date: 20050727
  Serious: Yes (Hospitalization)
  Sender: FDA-Public Use
  Company Number: CH-2005-001938

PATIENT
  Age: 33 Year
  Sex: Female

DRUGS (1)
  1. MIRENA [Suspect]
     Indication: CONTRACEPTION
     Dosage: 0.02 MG, CONT, INTRA-UTERINE
     Route: 015

REACTIONS (2)
  - DYSTROPHIC CALCIFICATION [None]
  - IUCD COMPLICATION [None]
